FAERS Safety Report 7406999-3 (Version None)
Quarter: 2011Q2

REPORT INFORMATION
  Report Type: 
  Country: None (occurrence: None)
  Receive Date: 20110411
  Receipt Date: 20110405
  Transmission Date: 20111010
  Serious: No
  Sender: FDA-Public Use
  Company Number: US-PFIZER INC-2011075552

PATIENT
  Sex: Male

DRUGS (3)
  1. ADVIL COLD AND SINUS [Suspect]
     Indication: HYPERSENSITIVITY
  2. ADVIL COLD AND SINUS [Suspect]
     Indication: NASOPHARYNGITIS
  3. ADVIL COLD AND SINUS [Suspect]
     Indication: SINUSITIS
     Dosage: UNK

REACTIONS (1)
  - SWELLING FACE [None]
